FAERS Safety Report 4420004-2 (Version None)
Quarter: 2004Q3

REPORT INFORMATION
  Report Type: 
  Country: None (occurrence: None)
  Receive Date: 20040804
  Receipt Date: 20040728
  Transmission Date: 20050211
  Serious: Yes (Other)
  Sender: FDA-Public Use
  Company Number: 200412358GDS

PATIENT
  Age: 68 Year
  Sex: Female
  Weight: 73.5 kg

DRUGS (8)
  1. NIMOTOP [Suspect]
     Indication: CEREBRAL INFARCTION
     Dosage: 50 ML, TOTAL DAILY, INTRAVENOUS
     Route: 042
  2. NPH INSULIN [Concomitant]
  3. NIMOTOP [Concomitant]
  4. CAPTOPRIL [Concomitant]
  5. DIGOXIN [Concomitant]
  6. ZOCOR [Concomitant]
  7. OMEPRAZOLE [Concomitant]
  8. FERCOR [Concomitant]

REACTIONS (3)
  - EXTRAVASATION [None]
  - INFUSION RELATED REACTION [None]
  - SKIN NECROSIS [None]
